FAERS Safety Report 16955777 (Version 2)
Quarter: 2020Q1

REPORT INFORMATION
  Report Type: Report from Study
  Country: US (occurrence: US)
  Receive Date: 20191024
  Receipt Date: 20200106
  Transmission Date: 20200409
  Serious: Yes (Other)
  Sender: FDA-Public Use
  Company Number: US-ROCHE-2442819

PATIENT
  Age: 65 Year
  Sex: Female
  Weight: 96.25 kg

DRUGS (12)
  1. OMEGA-3 FISH OIL [Concomitant]
     Active Substance: FISH OIL\OMEGA-3 FATTY ACIDS
     Route: 048
  2. OCREVUS [Suspect]
     Active Substance: OCRELIZUMAB
     Indication: RELAPSING-REMITTING MULTIPLE SCLEROSIS
     Dosage: EVERY 6 MONTHS ;ONGOING: YES
     Route: 042
     Dates: start: 20190107
  3. BOTOX [Concomitant]
     Active Substance: ONABOTULINUMTOXINA
     Indication: HYPERTONIC BLADDER
     Dosage: EVERY SIX MONTHS INJECTIONS INTO THE BLADDER
     Route: 065
     Dates: start: 2019
  4. VALIUM [Suspect]
     Active Substance: DIAZEPAM
     Indication: MUSCLE SPASMS
     Dosage: YES
     Route: 048
     Dates: start: 201403
  5. PRADAXA [Concomitant]
     Active Substance: DABIGATRAN ETEXILATE MESYLATE
     Indication: ANTICOAGULANT THERAPY
     Route: 048
     Dates: start: 201607
  6. ASPIRIN 81 [Concomitant]
     Active Substance: ASPIRIN
     Route: 048
  7. AMLODIPINE [Concomitant]
     Active Substance: AMLODIPINE BESYLATE
     Indication: HYPERTENSION
     Route: 048
  8. ESTRIOL [Concomitant]
     Active Substance: ESTRIOL
     Indication: HYPERTONIC BLADDER
     Dosage: VAGINAL CREME TWICE A WEEK ;ONGOING: YES
     Route: 065
     Dates: start: 2019
  9. TAURINE [Concomitant]
     Active Substance: TAURINE
     Route: 048
     Dates: start: 201807
  10. BACTRIM [Concomitant]
     Active Substance: SULFAMETHOXAZOLE\TRIMETHOPRIM
     Indication: PROPHYLAXIS
     Dosage: AT BEDTIME
     Route: 048
     Dates: start: 2019
  11. HYDROCODONE [Concomitant]
     Active Substance: HYDROCODONE
     Indication: OSTEOARTHRITIS
     Dosage: AS NEEDED ;ONGOING: YES
     Route: 048
     Dates: start: 201812
  12. MELATONIN [Concomitant]
     Active Substance: MELATONIN
     Dosage: AT BEDTIME
     Route: 048

REACTIONS (10)
  - Foot fracture [Recovered/Resolved]
  - Atrial fibrillation [Unknown]
  - Peroneal nerve palsy [Not Recovered/Not Resolved]
  - Blood cholesterol increased [Not Recovered/Not Resolved]
  - Hyperlipidaemia [Unknown]
  - Urinary tract infection [Not Recovered/Not Resolved]
  - Fatigue [Not Recovered/Not Resolved]
  - Irritable bowel syndrome [Unknown]
  - Depression [Not Recovered/Not Resolved]
  - Intervertebral disc degeneration [Not Recovered/Not Resolved]

NARRATIVE: CASE EVENT DATE: 201406
